FAERS Safety Report 6246465-4 (Version None)
Quarter: 2009Q2

REPORT INFORMATION
  Report Type: 
  Country: None (occurrence: None)
  Receive Date: 20090626
  Receipt Date: 20090618
  Transmission Date: 20091009
  Serious: Yes (Other)
  Sender: FDA-Public Use
  Company Number: US-ROCHE-638638

PATIENT
  Age: 48 Year

DRUGS (15)
  1. GANCICLOVIR [Suspect]
     Dosage: ROUTE: INTRAVENOUS
     Route: 050
  2. GANCICLOVIR [Suspect]
     Dosage: ROUTE: ORAL
     Route: 050
  3. SULFAMETHOXAZOLE AND TRIMETHOPRIM [Suspect]
     Indication: INFECTION PROPHYLAXIS
     Route: 065
  4. MYCOPHENOLATE MOFETIL [Suspect]
     Indication: PROPHYLAXIS AGAINST TRANSPLANT REJECTION
     Route: 065
  5. PROGRAF [Suspect]
     Indication: PROPHYLAXIS AGAINST TRANSPLANT REJECTION
     Dosage: TROUGH LEVELS: 12-20 NG/ML
     Route: 065
  6. PROGRAF [Suspect]
     Dosage: TROUGH LEVELS 8-12 NG/ML
     Route: 065
  7. PROGRAF [Suspect]
     Dosage: TROUGH LEVEL: 5-12 NG/ML
     Route: 065
  8. PROGRAF [Suspect]
     Dosage: INCREASED TROUGH LEVELS (POST REJECTION)
     Route: 065
  9. ANTI-THYMOCYTE GLOBULIN NOS [Suspect]
     Indication: PROPHYLAXIS AGAINST TRANSPLANT REJECTION
     Route: 065
  10. SIROLIMUS [Suspect]
     Indication: PROPHYLAXIS AGAINST TRANSPLANT REJECTION
     Dosage: TROUGH LEVELS: 5-10 NG/ML
     Route: 065
  11. METHYLPREDNISOLONE [Suspect]
     Indication: PROPHYLAXIS AGAINST TRANSPLANT REJECTION
     Route: 065
  12. METHYLPREDNISOLONE [Suspect]
     Route: 065
  13. PREDNISOLONE [Suspect]
     Indication: PROPHYLAXIS AGAINST TRANSPLANT REJECTION
     Route: 065
  14. PREDNISOLONE [Suspect]
     Route: 065
  15. PIPERACILLIN SODIUM AND TAZOBACTAM SODIUM [Concomitant]

REACTIONS (6)
  - CYTOMEGALOVIRUS INFECTION [None]
  - DIABETES MELLITUS [None]
  - HYPERLIPIDAEMIA [None]
  - NASOPHARYNGITIS [None]
  - NEPHROPATHY TOXIC [None]
  - TRANSPLANT REJECTION [None]
